FAERS Safety Report 11753718 (Version 1)
Quarter: 2015Q4

REPORT INFORMATION
  Report Type: Spontaneous
  Country: MX (occurrence: MX)
  Receive Date: 20151119
  Receipt Date: 20151119
  Transmission Date: 20160304
  Serious: Yes (Other)
  Sender: FDA-Public Use
  Company Number: MX-BRISTOL-MYERS SQUIBB COMPANY-BMS-2015-077415

PATIENT
  Sex: Female
  Weight: 58 kg

DRUGS (2)
  1. ORENCIA [Suspect]
     Active Substance: ABATACEPT
     Indication: RHEUMATOID ARTHRITIS
     Dosage: 125 MG, QWK
     Route: 058
     Dates: start: 20151005, end: 20151030
  2. ORENCIA [Suspect]
     Active Substance: ABATACEPT
     Dosage: 125 UNK, UNK
     Route: 058
     Dates: start: 20151005

REACTIONS (1)
  - Peripheral venous disease [Unknown]
